FAERS Safety Report 5316030-1 (Version None)
Quarter: 2007Q2

REPORT INFORMATION
  Report Type: 
  Country: None (occurrence: None)
  Receive Date: 20070503
  Receipt Date: 20070425
  Transmission Date: 20071010
  Serious: Yes (Hospitalization, Other)
  Sender: FDA-Public Use
  Company Number: US-ELI_LILLY_AND_COMPANY-US200704005752

PATIENT
  Age: 54 Year
  Sex: Female

DRUGS (3)
  1. HUMALOG [Suspect]
     Indication: DIABETES MELLITUS
     Dosage: 60 U, EACH MORNING
     Dates: start: 20070101
  2. HUMALOG [Suspect]
     Dosage: 30 U, EACH EVENING
     Dates: start: 20070101
  3. NOVOLOG [Concomitant]
     Dosage: UNK, UNKNOWN
     Dates: end: 20070101

REACTIONS (3)
  - CEREBROVASCULAR ACCIDENT [None]
  - SPEECH DISORDER [None]
  - SPINAL FUSION SURGERY [None]
